FAERS Safety Report 11986924 (Version 1)
Quarter: 2016Q1

REPORT INFORMATION
  Report Type: Spontaneous
  Country: US (occurrence: US)
  Receive Date: 20160202
  Receipt Date: 20160202
  Transmission Date: 20160526
  Serious: No
  Sender: FDA-Public Use
  Company Number: US-009507513-1601USA009813

PATIENT
  Sex: Female

DRUGS (1)
  1. NASONEX [Suspect]
     Active Substance: MOMETASONE FUROATE
     Dosage: 50MCG/2 SPRAYS, QD; STRENGTH 50 (UNITS NOT PROVIDED)
     Route: 055
     Dates: start: 20151014

REACTIONS (1)
  - Hypertension [Unknown]
